FAERS Safety Report 4876370-7 (Version None)
Quarter: 2005Q4

REPORT INFORMATION
  Report Type: 
  Country: None (occurrence: None)
  Receive Date: 20051206
  Receipt Date: 20051013
  Transmission Date: 20060501
  Serious: No
  Sender: FDA-Public Use
  Company Number: USA0510110856

PATIENT
  Sex: Female

DRUGS (1)
  1. CYMBALTA [Suspect]
     Indication: DEPRESSION
     Dosage: 60  MG
     Dates: start: 20050930, end: 20051007

REACTIONS (7)
  - EAR DISCOMFORT [None]
  - NASOPHARYNGITIS [None]
  - OPEN WOUND [None]
  - RASH [None]
  - RASH PRURITIC [None]
  - SCRATCH [None]
  - URTICARIA [None]
